FAERS Safety Report 12646683 (Version 1)
Quarter: 2016Q3

REPORT INFORMATION
  Report Type: Spontaneous
  Country: TR (occurrence: TR)
  Receive Date: 20160812
  Receipt Date: 20160812
  Transmission Date: 20161109
  Serious: Yes (Hospitalization, Other)
  Sender: FDA-Public Use
  Company Number: TR-PAR PHARMACEUTICAL COMPANIES-2016SCPR015721

PATIENT

DRUGS (1)
  1. DOXYCYCLINE. [Suspect]
     Active Substance: DOXYCYCLINE
     Indication: ACNE
     Dosage: 100 MG, DAILY
     Route: 048

REACTIONS (2)
  - Pancreatitis acute [Recovered/Resolved]
  - Gastrointestinal ulcer [Recovered/Resolved]
